FAERS Safety Report 8548025-9 (Version None)
Quarter: 2012Q3

REPORT INFORMATION
  Report Type: 
  Country: None (occurrence: None)
  Receive Date: 20120730
  Receipt Date: 20120724
  Transmission Date: 20120928
  Serious: Yes (Death, Hospitalization)
  Sender: FDA-Public Use
  Company Number: FR-ROCHE-1079260

PATIENT
  Sex: Male
  Weight: 74 kg

DRUGS (6)
  1. MABTHERA [Suspect]
     Indication: MALIGNANT LYMPHOID NEOPLASM
     Route: 065
     Dates: start: 20120531, end: 20120531
  2. CARMUSTINE [Suspect]
     Indication: MALIGNANT LYMPHOID NEOPLASM
     Route: 065
     Dates: start: 20120602, end: 20120602
  3. CYTARABINE HYDROCHLORIDE AND CISPLATIN AND DEXAMETHASONE AND ETOPOSIDE [Suspect]
     Indication: MALIGNANT LYMPHOID NEOPLASM
     Route: 065
     Dates: start: 20120601, end: 20120601
  4. METHYLPREDNISOLONE [Concomitant]
     Dosage: CUMULATIVE DOSE 616 MG
     Dates: start: 20120604, end: 20120604
  5. PREDNISONE [Suspect]
     Indication: MALIGNANT LYMPHOID NEOPLASM
     Dosage: CUMULATIVE DOSE 575 MG, LAST DOSE RECEIVED ON 04/JUN/2012 WAS 115 MG
     Route: 048
     Dates: start: 20120531, end: 20120604
  6. METHOTREXATE [Suspect]
     Indication: MALIGNANT LYMPHOID NEOPLASM
     Route: 065
     Dates: start: 20120531, end: 20120531

REACTIONS (5)
  - SEPTIC SHOCK [None]
  - LUNG DISORDER [None]
  - COMA [None]
  - INTRACRANIAL PRESSURE INCREASED [None]
  - BONE MARROW FAILURE [None]
